FAERS Safety Report 4341807-9 (Version None)
Quarter: 2004Q2

REPORT INFORMATION
  Report Type: 
  Country: None (occurrence: None)
  Receive Date: 20040420
  Receipt Date: 20040407
  Transmission Date: 20050107
  Serious: Yes (Death, Congenital Anomaly)
  Sender: FDA-Public Use
  Company Number: FR-GLAXOSMITHKLINE-B0329520B

PATIENT
  Sex: Male
  Weight: 1.5 kg

DRUGS (2)
  1. LAMICTAL [Suspect]
     Dosage: 200MG PER DAY
  2. DEPAKENE [Suspect]
     Dosage: 1250MG PER DAY

REACTIONS (7)
  - CLINODACTYLY [None]
  - DRUG EXPOSURE DURING PREGNANCY [None]
  - FACIAL DYSMORPHISM [None]
  - HYPERTELORISM OF ORBIT [None]
  - MULTIPLE CONGENITAL ABNORMALITIES [None]
  - RETROGNATHIA [None]
  - TALIPES [None]
